FAERS Safety Report 5288344-5 (Version None)
Quarter: 2007Q2

REPORT INFORMATION
  Report Type: 
  Country: None (occurrence: None)
  Receive Date: 20070405
  Receipt Date: 20070329
  Transmission Date: 20071010
  Serious: Yes (Disabling)
  Sender: FDA-Public Use
  Company Number: 2007SE01801

PATIENT
  Sex: Female
  Weight: 70 kg

DRUGS (1)
  1. SEROQUEL [Suspect]
     Indication: GENERALISED ANXIETY DISORDER
     Route: 048

REACTIONS (6)
  - ANXIETY [None]
  - HYPERVENTILATION [None]
  - INSOMNIA [None]
  - PALPITATIONS [None]
  - TENSION [None]
  - TREMOR [None]
